FAERS Safety Report 18364336 (Version 1)
Quarter: 2020Q4

REPORT INFORMATION
  Report Type: Spontaneous
  Country: US (occurrence: US)
  Receive Date: 20201008
  Receipt Date: 20201008
  Transmission Date: 20210114
  Serious: No
  Sender: FDA-Public Use
  Company Number: None

PATIENT
  Age: 22 Year
  Sex: Female
  Weight: 90 kg

DRUGS (2)
  1. IOHEXOL [Suspect]
     Active Substance: IOHEXOL
     Indication: IMAGING PROCEDURE
     Route: 048
     Dates: start: 20201007, end: 20201007
  2. DEXTROSE 5% SODIUM CHLORIDE 0.45% [Concomitant]
     Dates: start: 20201007, end: 20201007

REACTIONS (4)
  - Stridor [None]
  - Dyspnoea [None]
  - Swelling face [None]
  - Periorbital oedema [None]

NARRATIVE: CASE EVENT DATE: 20201007
